FAERS Safety Report 8983626 (Version 1)
Quarter: 2012Q4

REPORT INFORMATION
  Report Type: 
  Country: DE (occurrence: DE)
  Receive Date: 20121224
  Receipt Date: 20121224
  Transmission Date: 20130627
  Serious: Yes (Hospitalization)
  Sender: FDA-Public Use
  Company Number: DE-009507513-1212DEU008724

PATIENT
  Age: 8 Year
  Sex: Female

DRUGS (2)
  1. SINGULAIR [Suspect]
     Dosage: UNK
     Dates: start: 20110412
  2. CETIRIZINE [Suspect]
     Dosage: Saft
     Route: 048
     Dates: start: 20110404

REACTIONS (1)
  - Type 1 diabetes mellitus [Unknown]
